FAERS Safety Report 11560833 (Version 1)
Quarter: 2015Q3

REPORT INFORMATION
  Report Type: Report from Study
  Country: CN (occurrence: CN)
  Receive Date: 20150928
  Receipt Date: 20150928
  Transmission Date: 20151125
  Serious: Yes (Other)
  Sender: FDA-Public Use
  Company Number: CN-ASTELLAS-2015US035101

PATIENT
  Age: 67 Year
  Sex: Male

DRUGS (1)
  1. MICAFUNGIN [Suspect]
     Active Substance: MICAFUNGIN
     Indication: FUNGAL INFECTION
     Route: 042
     Dates: start: 20130327, end: 20130422

REACTIONS (8)
  - Deafness [Not Recovered/Not Resolved]
  - Hypokalaemia [Recovering/Resolving]
  - Abdominal distension [Recovered/Resolved]
  - Oral pain [Recovering/Resolving]
  - Cardiac failure [Recovering/Resolving]
  - Hepatic function abnormal [Recovered/Resolved]
  - Metabolic alkalosis [Recovering/Resolving]
  - Diarrhoea [Recovered/Resolved]

NARRATIVE: CASE EVENT DATE: 20130405
